FAERS Safety Report 18501394 (Version 1)
Quarter: 2020Q4

REPORT INFORMATION
  Report Type: Spontaneous
  Country: US (occurrence: US)
  Receive Date: 20201113
  Receipt Date: 20201113
  Transmission Date: 20210114
  Serious: No
  Sender: FDA-Public Use
  Company Number: US-009507513-2010USA009512

PATIENT
  Age: 34 Year
  Sex: Female
  Weight: 55.33 kg

DRUGS (3)
  1. NEXPLANON [Suspect]
     Active Substance: ETONOGESTREL
     Dosage: 1 ROD, EVERY 3 YEARS, UPPER LEFT ARM (ALSO REPORTED AS 2 ROD SYSTEM)
     Route: 059
     Dates: start: 2005
  2. NEXPLANON [Suspect]
     Active Substance: ETONOGESTREL
     Dosage: 1 ROD, EVERY 3 YEARS, UPPER LEFT ARM (ALSO REPORTED AS 2 ROD SYSTEM)
     Route: 059
     Dates: start: 2005
  3. JADELLE [Suspect]
     Active Substance: LEVONORGESTREL
     Dosage: 2 ROD SYSTEM

REACTIONS (5)
  - Myalgia [Not Recovered/Not Resolved]
  - Complication of device removal [Not Recovered/Not Resolved]
  - Incorrect product administration duration [Unknown]
  - Device breakage [Not Recovered/Not Resolved]
  - Overdose [Unknown]

NARRATIVE: CASE EVENT DATE: 2005
